FAERS Safety Report 9669229 (Version 3)
Quarter: 2014Q1

REPORT INFORMATION
  Report Type: Spontaneous
  Country: IT (occurrence: IT)
  Receive Date: 20131105
  Receipt Date: 20140123
  Transmission Date: 20141002
  Serious: Yes (Hospitalization)
  Sender: FDA-Public Use
  Company Number: IT-MYLANLABS-2013S1024099

PATIENT
  Age: 83 Year
  Sex: Female

DRUGS (11)
  1. LEVOFLOXACIN [Suspect]
     Indication: PNEUMONIA
     Route: 048
     Dates: start: 20130914, end: 20130924
  2. MICARDIS [Concomitant]
     Indication: PRODUCT USED FOR UNKNOWN INDICATION
     Dosage: 40 MG TABLETS
     Route: 048
     Dates: start: 20120101, end: 20131010
  3. KEPPRA [Concomitant]
     Indication: PRODUCT USED FOR UNKNOWN INDICATION
     Dosage: 500 MG FILM COATED TABLETS
     Route: 048
     Dates: start: 20120101, end: 20131010
  4. CATAPRESAN [Concomitant]
     Indication: PRODUCT USED FOR UNKNOWN INDICATION
     Dosage: 2.5 MG TRANSDERMAL PATCHES
     Route: 062
     Dates: start: 20120101, end: 20131010
  5. TIKLID [Concomitant]
     Indication: PRODUCT USED FOR UNKNOWN INDICATION
     Dosage: 250 MG FILM COATED TABLETS
     Route: 048
     Dates: start: 20120101, end: 20131010
  6. FOSTER /06206901/ [Concomitant]
     Indication: PRODUCT USED FOR UNKNOWN INDICATION
     Dosage: 100/6 UG FOR DELIVERY - SOLUTION FOR INHILATION
     Route: 055
     Dates: start: 20120101, end: 20131010
  7. ZANEDIP [Concomitant]
     Indication: PRODUCT USED FOR UNKNOWN INDICATION
     Dosage: 10 MG COATED TABLETS
     Route: 048
     Dates: start: 20120101, end: 20131010
  8. LEXOTAN [Concomitant]
     Indication: PRODUCT USED FOR UNKNOWN INDICATION
     Dosage: 2.5 MG/ML ORAL DROPS
     Route: 048
     Dates: start: 20120101, end: 20131010
  9. ENALAPRIL MALEATE [Concomitant]
     Indication: PRODUCT USED FOR UNKNOWN INDICATION
     Route: 048
     Dates: start: 20120101, end: 20131010
  10. OMEPRAZOLE [Concomitant]
     Indication: PRODUCT USED FOR UNKNOWN INDICATION
     Route: 048
     Dates: start: 20120101, end: 20131010
  11. ALLOPURINOL [Concomitant]
     Indication: PRODUCT USED FOR UNKNOWN INDICATION
     Route: 048
     Dates: start: 20120101, end: 20131010

REACTIONS (1)
  - Acute generalised exanthematous pustulosis [Recovered/Resolved]
